FAERS Safety Report 4521665-X (Version None)
Quarter: 2004Q4

REPORT INFORMATION
  Report Type: 
  Country: None (occurrence: None)
  Receive Date: 20041206
  Receipt Date: 20041129
  Transmission Date: 20050328
  Serious: Yes (Hospitalization)
  Sender: FDA-Public Use
  Company Number: 2004UW24314

PATIENT
  Age: 66 Year
  Sex: Female

DRUGS (2)
  1. LOSEC [Suspect]
     Indication: GASTROOESOPHAGEAL REFLUX DISEASE
     Dosage: 20 DAILY PO
     Route: 048
     Dates: start: 20010101
  2. ZOCOR [Concomitant]

REACTIONS (2)
  - CAMPYLOBACTER INFECTION [None]
  - DEHYDRATION [None]
